FAERS Safety Report 10901061 (Version 1)
Quarter: 2015Q1

REPORT INFORMATION
  Report Type: Spontaneous
  Country: KP (occurrence: KP)
  Receive Date: 20150310
  Receipt Date: 20150310
  Transmission Date: 20150721
  Serious: Yes (Hospitalization, Other)
  Sender: FDA-Public Use
  Company Number: KP-RANBAXY-2013R1-72588

PATIENT
  Age: 12 Year
  Sex: Female

DRUGS (31)
  1. CARBAMAZEPINE. [Suspect]
     Active Substance: CARBAMAZEPINE
     Indication: AGGRESSION
     Dosage: UNK
     Route: 048
  2. QUETIAPINE [Suspect]
     Active Substance: QUETIAPINE
     Indication: IMPULSIVE BEHAVIOUR
     Dosage: UNK
     Route: 048
  3. LITHIUM [Suspect]
     Active Substance: LITHIUM CARBONATE
     Indication: AGGRESSION
  4. OLANZAPINE. [Suspect]
     Active Substance: OLANZAPINE
     Indication: MOOD ALTERED
  5. RISPERIDONE. [Suspect]
     Active Substance: RISPERIDONE
     Indication: AGGRESSION
  6. IBUPROFEN. [Concomitant]
     Active Substance: IBUPROFEN
     Indication: MUSCULOSKELETAL DISCOMFORT
     Dosage: UNK
     Route: 065
  7. METHYLPHENIDATE [Concomitant]
     Active Substance: METHYLPHENIDATE
     Indication: ATTENTION DEFICIT/HYPERACTIVITY DISORDER
     Dosage: UNK
     Route: 065
  8. RISPERIDONE. [Suspect]
     Active Substance: RISPERIDONE
     Indication: AGGRESSION
  9. VALPROIC ACID. [Suspect]
     Active Substance: VALPROIC ACID
     Indication: AFFECT LABILITY
     Dosage: 600 MG, BID
     Route: 048
  10. LITHIUM [Suspect]
     Active Substance: LITHIUM CARBONATE
     Indication: AGGRESSION
  11. VALPROIC ACID. [Concomitant]
     Active Substance: VALPROIC ACID
     Indication: MOOD ALTERED
     Dosage: UNK
     Route: 065
  12. QUETIAPINE [Suspect]
     Active Substance: QUETIAPINE
     Indication: AGGRESSION
  13. VALPROIC ACID. [Suspect]
     Active Substance: VALPROIC ACID
     Indication: AGGRESSION
  14. OLANZAPINE. [Suspect]
     Active Substance: OLANZAPINE
     Indication: AGGRESSION
     Dosage: UNK
     Route: 048
  15. IBUPROFEN. [Concomitant]
     Active Substance: IBUPROFEN
     Indication: PYREXIA
  16. RISPERIDONE. [Suspect]
     Active Substance: RISPERIDONE
     Indication: AGGRESSION
     Dosage: UNK
     Route: 065
  17. RISPERIDONE. [Suspect]
     Active Substance: RISPERIDONE
     Indication: MOOD ALTERED
  18. RISPERIDONE. [Suspect]
     Active Substance: RISPERIDONE
     Indication: AGGRESSION
     Dosage: 2 MG, DAILY
     Route: 065
  19. VALPROIC ACID. [Suspect]
     Active Substance: VALPROIC ACID
     Indication: AFFECT LABILITY
     Dosage: 960 MG, DAILY
     Route: 065
  20. CARBAMAZEPINE. [Suspect]
     Active Substance: CARBAMAZEPINE
     Indication: MOOD ALTERED
  21. CARBAMAZEPINE. [Suspect]
     Active Substance: CARBAMAZEPINE
     Indication: AGGRESSION
  22. QUETIAPINE [Suspect]
     Active Substance: QUETIAPINE
     Indication: IMPULSIVE BEHAVIOUR
     Dosage: UNK
     Route: 048
  23. QUETIAPINE [Suspect]
     Active Substance: QUETIAPINE
     Indication: AGGRESSION
  24. RISPERIDONE. [Suspect]
     Active Substance: RISPERIDONE
     Indication: MOOD ALTERED
  25. VALPROIC ACID. [Suspect]
     Active Substance: VALPROIC ACID
     Indication: AGGRESSION
     Dosage: UNK
     Route: 048
  26. VALPROIC ACID. [Suspect]
     Active Substance: VALPROIC ACID
     Indication: MOOD ALTERED
  27. VALPROIC ACID. [Suspect]
     Active Substance: VALPROIC ACID
     Indication: AGGRESSION
  28. IBUPROFEN. [Concomitant]
     Active Substance: IBUPROFEN
     Indication: RENAL IMPAIRMENT
  29. LITHIUM [Suspect]
     Active Substance: LITHIUM CARBONATE
     Indication: AFFECT LABILITY
     Dosage: 150 MG, BID
     Route: 048
  30. LITHIUM [Suspect]
     Active Substance: LITHIUM CARBONATE
     Indication: AFFECT LABILITY
     Dosage: 900 MG, DAILY
     Route: 065
  31. ACETAMINOPHEN. [Concomitant]
     Active Substance: ACETAMINOPHEN
     Indication: PHARYNGOTONSILLITIS
     Dosage: UNK
     Route: 065

REACTIONS (3)
  - Rash [Unknown]
  - Neuroleptic malignant syndrome [Recovering/Resolving]
  - Drug ineffective [Unknown]
